FAERS Safety Report 22089409 (Version 3)
Quarter: 2023Q1

REPORT INFORMATION
  Report Type: Report from Study
  Country: ES (occurrence: ES)
  Receive Date: 20230313
  Receipt Date: 20230324
  Transmission Date: 20230418
  Serious: Yes (Hospitalization)
  Sender: FDA-Public Use
  Company Number: ES-ABBVIE-22K-144-4493735-00

PATIENT
  Sex: Male
  Weight: 60 kg

DRUGS (3)
  1. CARBIDOPA\LEVODOPA [Suspect]
     Active Substance: CARBIDOPA\LEVODOPA
     Indication: Parkinson^s disease
     Route: 050
     Dates: start: 20230314
  2. CARBIDOPA\LEVODOPA [Suspect]
     Active Substance: CARBIDOPA\LEVODOPA
     Indication: Parkinson^s disease
     Dates: start: 20201222
  3. CARBIDOPA\LEVODOPA [Suspect]
     Active Substance: CARBIDOPA\LEVODOPA
     Dosage: DISCONTINUED IN 2023
     Route: 050
     Dates: start: 20201222

REACTIONS (18)
  - Device issue [Not Recovered/Not Resolved]
  - Disorientation [Unknown]
  - Unevaluable event [Not Recovered/Not Resolved]
  - Embedded device [Not Recovered/Not Resolved]
  - Aggression [Unknown]
  - Stoma site discharge [Not Recovered/Not Resolved]
  - Device use issue [Unknown]
  - Purulent discharge [Recovered/Resolved]
  - Suture rupture [Not Recovered/Not Resolved]
  - Drug ineffective [Not Recovered/Not Resolved]
  - Unevaluable event [Not Recovered/Not Resolved]
  - Diarrhoea [Unknown]
  - Agitation [Unknown]
  - Oral disorder [Not Recovered/Not Resolved]
  - Dysphagia [Not Recovered/Not Resolved]
  - Hypophagia [Not Recovered/Not Resolved]
  - Device issue [Unknown]
  - Choking [Not Recovered/Not Resolved]

NARRATIVE: CASE EVENT DATE: 20220101
